FAERS Safety Report 8240468-6 (Version None)
Quarter: 2012Q1

REPORT INFORMATION
  Report Type: 
  Country: None (occurrence: None)
  Receive Date: 20120328
  Receipt Date: 20120319
  Transmission Date: 20120608
  Serious: Yes (Hospitalization)
  Sender: FDA-Public Use
  Company Number: US-ROCHE-1045340

PATIENT
  Age: 77 Year
  Sex: Female
  Weight: 77.7 kg

DRUGS (4)
  1. CARBOPLATIN [Suspect]
     Dosage: CHANGED TO IV DUE TO PORT COMPLICATION
     Route: 042
  2. AVASTIN [Suspect]
     Indication: OVARIAN CANCER
     Dosage: OVER 30-90 MIN ON DAY 1, BEGINNING WITH CYCLE 2
     Route: 042
     Dates: start: 20111011
  3. PACLITAXEL [Suspect]
     Indication: OVARIAN CANCER
     Dosage: OVER 1 HR ON DAYS 1, 8 AND 15
     Route: 042
     Dates: start: 20111011
  4. CARBOPLATIN [Suspect]
     Indication: OVARIAN CANCER
     Dosage: 6 AUC ON DAY 1
     Route: 033
     Dates: start: 20111011

REACTIONS (1)
  - SMALL INTESTINAL OBSTRUCTION [None]
